FAERS Safety Report 17356183 (Version 1)
Quarter: 2020Q1

REPORT INFORMATION
  Report Type: Spontaneous
  Country: NO (occurrence: NO)
  Receive Date: 20200131
  Receipt Date: 20200131
  Transmission Date: 20200409
  Serious: Yes (Other)
  Sender: FDA-Public Use
  Company Number: NO-PFIZER INC-2020042810

PATIENT
  Age: 46 Year
  Sex: Female
  Weight: 65 kg

DRUGS (2)
  1. LIPITOR [Suspect]
     Active Substance: ATORVASTATIN CALCIUM
     Dosage: 1 DF, 2X/DAY, EVERY 12 HOURS
     Route: 048
     Dates: start: 20170531, end: 20170722
  2. TRAN [Concomitant]

REACTIONS (15)
  - Pyrexia [Recovering/Resolving]
  - Muscle twitching [Recovering/Resolving]
  - Arthralgia [Recovering/Resolving]
  - Chills [Recovering/Resolving]
  - Facial pain [Recovering/Resolving]
  - Burning sensation [Recovering/Resolving]
  - Muscular weakness [Recovering/Resolving]
  - Paraesthesia oral [Recovering/Resolving]
  - Neuropathy peripheral [Recovering/Resolving]
  - Asthenia [Recovering/Resolving]
  - Joint swelling [Recovering/Resolving]
  - Hypoaesthesia oral [Recovering/Resolving]
  - Vomiting [Recovering/Resolving]
  - Influenza like illness [Recovering/Resolving]
  - General physical health deterioration [Recovering/Resolving]

NARRATIVE: CASE EVENT DATE: 20170612
